FAERS Safety Report 8574772-9 (Version None)
Quarter: 2012Q3

REPORT INFORMATION
  Report Type: 
  Country: None (occurrence: None)
  Receive Date: 20120807
  Receipt Date: 20101007
  Transmission Date: 20120928
  Serious: Yes (Hospitalization, Other)
  Sender: FDA-Public Use
  Company Number: US-BAYER-201034812NA

PATIENT
  Age: 40 Year
  Sex: Female
  Weight: 67 kg

DRUGS (4)
  1. IBUPROFEN [Concomitant]
     Dosage: UNK
     Dates: start: 20070101
  2. YAZ [Suspect]
     Indication: ORAL CONTRACEPTION
     Dosage: UNK
     Dates: start: 20070101, end: 20090101
  3. YASMIN [Suspect]
     Indication: ORAL CONTRACEPTION
     Dosage: UNK
     Dates: start: 20020101
  4. DROSPIRENONE AND ETHINYL ESTRADIOL [Suspect]
     Indication: PRODUCT USED FOR UNKNOWN INDICATION

REACTIONS (8)
  - CHOLECYSTITIS ACUTE [None]
  - CHOLELITHIASIS [None]
  - WEIGHT DECREASED [None]
  - ABDOMINAL PAIN [None]
  - DYSPEPSIA [None]
  - FATIGUE [None]
  - COLD SWEAT [None]
  - NAUSEA [None]
